FAERS Safety Report 4445168-6 (Version None)
Quarter: 2004Q3

REPORT INFORMATION
  Report Type: 
  Country: None (occurrence: None)
  Receive Date: 20040903
  Receipt Date: 20040826
  Transmission Date: 20050211
  Serious: Yes (Death, Other)
  Sender: FDA-Public Use
  Company Number: 2004-BP-07323RO

PATIENT
  Age: 67 Year
  Sex: Male

DRUGS (3)
  1. LEUCOVORIN CALCIUM [Suspect]
     Indication: COLON CANCER
     Dosage: CYCLIC, COMPLETED 4TH CYCLE 2/2002
     Dates: start: 20010901, end: 20020201
  2. IRINOTECAN (IRINOTECAN) [Suspect]
     Indication: COLON CANCER
     Dosage: CYCLIC, COMPLETED 4TH CYCLE 2/2002
     Dates: start: 20010901, end: 20020201
  3. FLUOROURACIL [Suspect]
     Indication: COLON CANCER
     Dosage: CYCLIC, COMPLETED 4TH CYCLE 2/2002
     Dates: start: 20010901, end: 20020201

REACTIONS (9)
  - ALANINE AMINOTRANSFERASE INCREASED [None]
  - ASPARTATE AMINOTRANSFERASE INCREASED [None]
  - BLOOD ALKALINE PHOSPHATASE INCREASED [None]
  - COLORECTAL CANCER METASTATIC [None]
  - HEPATIC LESION [None]
  - HEPATITIS C ANTIBODY POSITIVE [None]
  - LYMPHADENOPATHY [None]
  - MALIGNANT NEOPLASM PROGRESSION [None]
  - METASTASES TO LIVER [None]
